FAERS Safety Report 24724282 (Version 1)
Quarter: 2024Q4

REPORT INFORMATION
  Report Type: Report from Study
  Country: US (occurrence: US)
  Receive Date: 20241211
  Receipt Date: 20241211
  Transmission Date: 20250115
  Serious: Yes (Death, Hospitalization, Other)
  Sender: AMNEAL
  Company Number: US-AMNEAL PHARMACEUTICALS-2024-AMRX-04438

PATIENT
  Sex: Female
  Weight: 52.1 kg

DRUGS (3)
  1. BEVACIZUMAB-MALY [Suspect]
     Active Substance: BEVACIZUMAB-MALY
     Indication: Product used for unknown indication
     Dosage: 400 MG/ 16ML SDV (ADMINISTER 800MG INTRAVENOUSLY EVERY 21 DAYS)
     Route: 042
     Dates: start: 20241114, end: 20241114
  2. TAXOL [Suspect]
     Active Substance: PACLITAXEL
     Indication: Product used for unknown indication
     Dosage: 270 MG
     Route: 042
     Dates: start: 20241114, end: 20241114
  3. CARBOPLATIN [Suspect]
     Active Substance: CARBOPLATIN
     Indication: Product used for unknown indication
     Dosage: 500 MILLIGRAM
     Route: 042
     Dates: start: 20241114, end: 20241114

REACTIONS (3)
  - Pneumonia [Fatal]
  - Seizure [Fatal]
  - Vomiting [Fatal]
